FAERS Safety Report 17973541 (Version 2)
Quarter: 2020Q3

REPORT INFORMATION
  Report Type: Spontaneous
  Country: DE (occurrence: DE)
  Receive Date: 20200702
  Receipt Date: 20200724
  Transmission Date: 20201103
  Serious: No
  Sender: FDA-Public Use
  Company Number: DE-HORMOSAN PHARMA GMBH-2020-02615

PATIENT
  Sex: Male

DRUGS (2)
  1. LEVETIRACETAM?HORMOSAN 500 MG FILMTABLETTEN [Suspect]
     Active Substance: LEVETIRACETAM
     Dosage: 500 MG IN THE MORNING AND 1X 750 MG IN TH EVENING , BID
     Route: 065
     Dates: start: 202005
  2. LEVETIRACETAM?HORMOSAN 500 MG FILMTABLETTEN [Suspect]
     Active Substance: LEVETIRACETAM
     Indication: PRODUCT USED FOR UNKNOWN INDICATION
     Dosage: 500 MILLIGRAM, BID, (1 TABLET IN THE MORNING AND THE EVENING) FOR APPROXIMATELY 2 WEEKS
     Route: 065
     Dates: start: 202004, end: 202005

REACTIONS (5)
  - Limb discomfort [Unknown]
  - Abdominal discomfort [Unknown]
  - Adverse drug reaction [Unknown]
  - Wrong technique in product usage process [Unknown]
  - Bleeding time abnormal [Unknown]

NARRATIVE: CASE EVENT DATE: 202004
